FAERS Safety Report 9848198 (Version 1)
Quarter: 2014Q1

REPORT INFORMATION
  Report Type: Spontaneous
  Country: US (occurrence: None)
  Receive Date: 20140123
  Receipt Date: 20140123
  Transmission Date: 20141002
  Serious: Yes (Life-Threatening, Hospitalization)
  Sender: FDA-Public Use
  Company Number: None

PATIENT
  Age: 59 Year
  Sex: Male
  Weight: 68.1 kg

DRUGS (1)
  1. BASILIXIMAB [Suspect]
     Indication: PROPHYLAXIS AGAINST TRANSPLANT REJECTION
     Dosage: BASILIXIMAB 20MG, Q96H X 2 DOSES
     Route: 042
     Dates: start: 20130428, end: 20130501

REACTIONS (1)
  - Graft versus host disease [None]
